FAERS Safety Report 8139071-8 (Version None)
Quarter: 2012Q1

REPORT INFORMATION
  Report Type: 
  Country: None (occurrence: None)
  Receive Date: 20120215
  Receipt Date: 20120210
  Transmission Date: 20120608
  Serious: Yes (Hospitalization, Other)
  Sender: FDA-Public Use
  Company Number: GB-PFIZER INC-2012037908

PATIENT
  Age: 68 Year
  Sex: Female

DRUGS (6)
  1. VENLAFAXINE HCL [Suspect]
     Dosage: 150 MG, UNK
     Route: 048
  2. FERROUS SULFATE TAB [Suspect]
     Dosage: UNK
     Route: 048
     Dates: end: 20120101
  3. LITHIUM CARBONATE [Concomitant]
     Dosage: 600 MG, UNK
     Route: 048
  4. CLOZARIL [Suspect]
     Indication: SCHIZOPHRENIA
     Dosage: UNK
     Route: 048
     Dates: start: 20000724
  5. ASPIRIN [Suspect]
     Dosage: 75 MG, UNK
     Route: 048
  6. CLOZARIL [Suspect]
     Dosage: 250 MG, UNK
     Route: 048
     Dates: start: 20120111

REACTIONS (5)
  - HAEMATEMESIS [None]
  - LOWER RESPIRATORY TRACT INFECTION [None]
  - AGITATION [None]
  - GASTRIC ULCER [None]
  - PYREXIA [None]
